FAERS Safety Report 5434275-7 (Version None)
Quarter: 2007Q3

REPORT INFORMATION
  Report Type: 
  Country: None (occurrence: None)
  Receive Date: 20070831
  Receipt Date: 20070830
  Transmission Date: 20080115
  Serious: Yes (Life-Threatening)
  Sender: FDA-Public Use
  Company Number: HQWYE951131AUG07

PATIENT
  Sex: Female
  Weight: 90.7 kg

DRUGS (10)
  1. RAPAMUNE [Suspect]
     Route: 048
     Dates: start: 20070103, end: 20070801
  2. ATORVASTATIN CALCIUM [Concomitant]
     Indication: HYPERLIPIDAEMIA
     Route: 048
  3. AVAPRO [Concomitant]
     Indication: HYPERTENSION
     Route: 048
  4. CALCIUM [Concomitant]
  5. LISINOPRIL [Concomitant]
     Indication: HYPERTENSION
  6. IBUPROFEN [Concomitant]
     Indication: PAIN
     Dosage: 600 MG EVERY 6 HRS PRN
  7. ACETAMINOPHEN [Concomitant]
     Indication: PAIN
     Dosage: 1000 MG EVERY 6 HRS PRN
  8. MULTIVITAMINS, COMBINATIONS [Concomitant]
  9. OMEPRAZOLE [Concomitant]
     Indication: GASTROOESOPHAGEAL REFLUX DISEASE
     Route: 048
  10. ATENOLOL [Concomitant]
     Indication: HYPERTENSION
     Route: 048

REACTIONS (3)
  - NIGHT BLINDNESS [None]
  - VISUAL DISTURBANCE [None]
  - VISUAL FIELD DEFECT [None]
